FAERS Safety Report 24062372 (Version 3)
Quarter: 2024Q3

REPORT INFORMATION
  Report Type: Report from Study
  Country: US (occurrence: US)
  Receive Date: 20240708
  Receipt Date: 20240820
  Transmission Date: 20241016
  Serious: Yes (Other)
  Sender: MYLAN
  Company Number: US-MYLANLABS-2024M1063284

PATIENT
  Age: 0 Year
  Sex: Female
  Weight: 3.34 kg

DRUGS (13)
  1. SILDENAFIL CITRATE [Suspect]
     Active Substance: SILDENAFIL CITRATE
     Indication: Bronchopulmonary dysplasia
     Dosage: 1.7 MILLIGRAM, TID (3 IN 1 DAY)
     Route: 065
     Dates: start: 20240606, end: 20240608
  2. SILDENAFIL CITRATE [Suspect]
     Active Substance: SILDENAFIL CITRATE
     Dosage: 3.3 MILLIGRAM, TID (3 IN 1 DAY)
     Route: 065
     Dates: start: 20240608, end: 20240610
  3. SILDENAFIL CITRATE [Suspect]
     Active Substance: SILDENAFIL CITRATE
     Dosage: 5 MILLIGRAM, TID (3 IN 1 DAY)
     Route: 065
     Dates: start: 20240610, end: 20240612
  4. SILDENAFIL CITRATE [Suspect]
     Active Substance: SILDENAFIL CITRATE
     Dosage: 6.7 MILLIGRAM, TID (3 IN 1 DAY)
     Route: 065
     Dates: start: 20240612, end: 20240614
  5. SILDENAFIL CITRATE [Suspect]
     Active Substance: SILDENAFIL CITRATE
     Dosage: 8.4 MILLIGRAM, TID (3 IN 1 DAY)
     Route: 065
     Dates: start: 20240614, end: 20240616
  6. SILDENAFIL CITRATE [Suspect]
     Active Substance: SILDENAFIL CITRATE
     Dosage: 10 MILLIGRAM, TID (3 IN 1 DAY)
     Route: 065
     Dates: start: 20240616, end: 20240618
  7. SILDENAFIL CITRATE [Suspect]
     Active Substance: SILDENAFIL CITRATE
     Dosage: 11.7 MILLIGRAM, TID (3 IN 1 DAY)
     Route: 065
     Dates: start: 20240618, end: 20240620
  8. SILDENAFIL CITRATE [Suspect]
     Active Substance: SILDENAFIL CITRATE
     Dosage: 14.9 MILLIGRAM, TID (3 IN 1 DAY)
     Route: 065
     Dates: start: 20240620, end: 20240620
  9. SILDENAFIL CITRATE [Suspect]
     Active Substance: SILDENAFIL CITRATE
     Dosage: 11.9 MILLIGRAM, TID (3 IN 1 DAY)
     Route: 065
     Dates: start: 20240620, end: 20240620
  10. SILDENAFIL CITRATE [Suspect]
     Active Substance: SILDENAFIL CITRATE
     Dosage: 14.9 MILLIGRAM, TID (3 IN 1 DAY)
     Route: 065
     Dates: start: 20240621, end: 20240628
  11. SILDENAFIL CITRATE [Suspect]
     Active Substance: SILDENAFIL CITRATE
     Dosage: 15.6 MILLIGRAM, TID (3 IN 1 DAY)
     Route: 065
     Dates: start: 20240628, end: 20240701
  12. SILDENAFIL CITRATE [Suspect]
     Active Substance: SILDENAFIL CITRATE
     Dosage: 11.7 MILLIGRAM, TID (3 IN 1 DAY)
     Route: 065
     Dates: start: 20240704, end: 20240706
  13. SILDENAFIL CITRATE [Suspect]
     Active Substance: SILDENAFIL CITRATE
     Dosage: 7.8 MILLIGRAM, TID (3 IN 1 DAY)
     Route: 065
     Dates: start: 20240706, end: 20240707

REACTIONS (2)
  - Pneumonia bacterial [Recovered/Resolved]
  - Off label use [Unknown]

NARRATIVE: CASE EVENT DATE: 20240606
